FAERS Safety Report 9272099 (Version 1)
Quarter: 2013Q2

REPORT INFORMATION
  Report Type: Report from Study
  Country: DE (occurrence: DE)
  Receive Date: 20130506
  Receipt Date: 20130506
  Transmission Date: 20140414
  Serious: Yes (Hospitalization)
  Sender: FDA-Public Use
  Company Number: DE-UCBSA-081491

PATIENT
  Age: 52 Year
  Sex: Male

DRUGS (9)
  1. VIMPAT [Suspect]
     Indication: EPILEPSY
     Dosage: 50 MG/DAY
     Route: 048
     Dates: start: 20090813, end: 2009
  2. VIMPAT [Suspect]
     Indication: EPILEPSY
     Route: 048
     Dates: start: 200909, end: 20091025
  3. VIMPAT [Suspect]
     Indication: EPILEPSY
     Dosage: 150 MG/DAY
     Route: 048
     Dates: start: 20091025, end: 20091101
  4. LAMOTRIGINE [Concomitant]
     Indication: EPILEPSY
     Dosage: 400MG/DAY
  5. LAMOTRIGINE [Concomitant]
     Indication: EPILEPSY
     Route: 048
     Dates: start: 200810
  6. LEVETIRACETAM [Concomitant]
     Indication: EPILEPSY
     Route: 048
     Dates: start: 200609
  7. PREGABALINE [Concomitant]
     Indication: EPILEPSY
     Route: 048
  8. QUETIAPIN [Concomitant]
     Indication: SLEEP DISORDER
     Route: 048
     Dates: start: 2009
  9. BISACODYL [Concomitant]
     Indication: CONSTIPATION

REACTIONS (3)
  - Convulsion [Recovering/Resolving]
  - Gait disturbance [Recovering/Resolving]
  - Drug ineffective [Recovered/Resolved]
